FAERS Safety Report 19405758 (Version 1)
Quarter: 2021Q2

REPORT INFORMATION
  Report Type: Spontaneous
  Country: US (occurrence: US)
  Receive Date: 20210611
  Receipt Date: 20210611
  Transmission Date: 20210717
  Serious: Yes (Other)
  Sender: FDA-Public Use
  Company Number: US-LUPIN PHARMACEUTICALS INC.-2021-09102

PATIENT
  Age: 58 Year
  Sex: Male

DRUGS (8)
  1. IPILIMUMAB [Concomitant]
     Active Substance: IPILIMUMAB
     Indication: METASTATIC MALIGNANT MELANOMA
     Dosage: 3 MILLIGRAM/KILOGRAM
     Route: 065
  2. MICONAZOLE NITRATE. [Suspect]
     Active Substance: MICONAZOLE NITRATE
     Indication: DERMATITIS
     Dosage: UNK
     Route: 061
  3. PEMBROLIZUMAB. [Concomitant]
     Active Substance: PEMBROLIZUMAB
     Indication: METASTATIC MALIGNANT MELANOMA
     Dosage: 200 MILLIGRAM
     Route: 065
  4. FLUCONAZOLE. [Concomitant]
     Active Substance: FLUCONAZOLE
     Dosage: 100 MILLIGRAM, QD (FOR 6 ADDITIONAL DAYS)
     Route: 048
  5. CETIRIZINE [Suspect]
     Active Substance: CETIRIZINE HYDROCHLORIDE
     Indication: DERMATITIS
     Dosage: 10 MILLIGRAM, QD
     Route: 065
  6. FLUCONAZOLE. [Concomitant]
     Active Substance: FLUCONAZOLE
     Indication: DERMATITIS
     Dosage: 200 MILLIGRAM, QD (ON DAY 1)
     Route: 048
  7. BETAMETHASONE. [Suspect]
     Active Substance: BETAMETHASONE
     Indication: DERMATITIS
     Dosage: UNK (CREAM)
     Route: 061
  8. PREDNISONE. [Concomitant]
     Active Substance: PREDNISONE
     Indication: DERMATITIS
     Dosage: 50 MILLIGRAM, QD
     Route: 048

REACTIONS (2)
  - False negative investigation result [Unknown]
  - Drug ineffective [Unknown]
